FAERS Safety Report 4844507-1 (Version None)
Quarter: 2005Q4

REPORT INFORMATION
  Report Type: 
  Country: None (occurrence: None)
  Receive Date: 20051203
  Receipt Date: 20051026
  Transmission Date: 20060501
  Serious: Yes (Hospitalization, Other)
  Sender: FDA-Public Use
  Company Number: PHRM2005FR02851

PATIENT
  Age: 55 Year
  Sex: Male
  Weight: 80 kg

DRUGS (7)
  1. ZOMETA [Suspect]
     Indication: METASTASES TO BONE
     Dosage: 4 MG, QMO
     Route: 042
     Dates: start: 20000601, end: 20051001
  2. GEMZAR [Concomitant]
     Indication: METASTASES TO BONE
     Dosage: 1 G 2 TIMES PER MONTH
     Route: 042
     Dates: start: 20000719
  3. AREDIA [Concomitant]
     Dosage: 90 MG, QMO
     Route: 042
     Dates: start: 20000701, end: 20010101
  4. AREDIA [Concomitant]
     Dosage: 90 MG, QMO
     Route: 042
     Dates: start: 20020101, end: 20020701
  5. SOLU-MEDROL [Concomitant]
     Dosage: 40 MG, QMO
     Route: 042
  6. CISPLATIN [Concomitant]
     Dates: start: 20000719, end: 20050914
  7. TAXOTERE [Concomitant]
     Dates: start: 20030901, end: 20040101

REACTIONS (7)
  - IMPAIRED HEALING [None]
  - JOINT SWELLING [None]
  - OSTEOLYSIS [None]
  - OSTEONECROSIS [None]
  - SURGERY [None]
  - TOOTH EXTRACTION [None]
  - TOOTHACHE [None]
